FAERS Safety Report 5146824-7 (Version None)
Quarter: 2006Q4

REPORT INFORMATION
  Report Type: 
  Country: None (occurrence: None)
  Receive Date: 20061107
  Receipt Date: 20061107
  Transmission Date: 20070319
  Serious: Yes (Other)
  Sender: FDA-Public Use
  Company Number: None

PATIENT
  Age: 61 Year
  Sex: Male
  Weight: 92.0802 kg

DRUGS (1)
  1. NIFEDIAC CC 60 MG [Suspect]
     Dosage: 1 PO OD
     Route: 048

REACTIONS (1)
  - DRUG INTOLERANCE [None]
